FAERS Safety Report 17084577 (Version 1)
Quarter: 2019Q4

REPORT INFORMATION
  Report Type: Report from Study
  Country: US (occurrence: US)
  Receive Date: 20191127
  Receipt Date: 20191127
  Transmission Date: 20200122
  Serious: Yes (Hospitalization)
  Sender: FDA-Public Use
  Company Number: US-GILEAD-2019-0439821

PATIENT
  Age: 52 Year
  Sex: Female

DRUGS (14)
  1. AMBRISENTAN [Suspect]
     Active Substance: AMBRISENTAN
     Indication: PULMONARY ARTERIAL HYPERTENSION
     Dosage: 10 MG, QD
     Route: 065
     Dates: start: 20120127
  2. NEXIUM I.V. [Concomitant]
     Active Substance: ESOMEPRAZOLE SODIUM
  3. PREDNISONE. [Concomitant]
     Active Substance: PREDNISONE
  4. TADALAFIL. [Concomitant]
     Active Substance: TADALAFIL
  5. BONIVA [Concomitant]
     Active Substance: IBANDRONATE SODIUM
  6. CLONAZEPAM. [Concomitant]
     Active Substance: CLONAZEPAM
  7. TOPIRAMATE. [Concomitant]
     Active Substance: TOPIRAMATE
  8. ALPRAZOLAM. [Concomitant]
     Active Substance: ALPRAZOLAM
  9. LEVETIRACETAM. [Concomitant]
     Active Substance: LEVETIRACETAM
  10. EVOXAC [Concomitant]
     Active Substance: CEVIMELINE HYDROCHLORIDE
  11. GABAPENTIN. [Concomitant]
     Active Substance: GABAPENTIN
  12. LEVOTHYROXINE. [Concomitant]
     Active Substance: LEVOTHYROXINE
  13. LINEZOLID. [Concomitant]
     Active Substance: LINEZOLID
  14. MIDODRINE [Concomitant]
     Active Substance: MIDODRINE

REACTIONS (2)
  - Intentional product use issue [Unknown]
  - Infection [Unknown]
